FAERS Safety Report 16301628 (Version 5)
Quarter: 2020Q1

REPORT INFORMATION
  Report Type: Spontaneous
  Country: IT (occurrence: IT)
  Receive Date: 20190511
  Receipt Date: 20200327
  Transmission Date: 20200409
  Serious: Yes (Disabling, Other)
  Sender: FDA-Public Use
  Company Number: IT-AMGEN-ITASP2019072003

PATIENT
  Age: 70 Year
  Sex: Female

DRUGS (14)
  1. SINGULAIR [Concomitant]
     Active Substance: MONTELUKAST SODIUM
     Dosage: 4 MILLIGRAM, 7CPR MAST 4MG
  2. CRESTOR [Concomitant]
     Active Substance: ROSUVASTATIN CALCIUM
     Dosage: 5 MILLIGRAM, 7CPR RIV 5MG
  3. DIBASE [Concomitant]
     Active Substance: CHOLECALCIFEROL
     Dosage: DIBASE  IM OS 6F 1ML 10000OUL / M
  4. PROLIA [Suspect]
     Active Substance: DENOSUMAB
     Indication: OSTEOPOROSIS
     Dosage: UNK
     Route: 065
     Dates: start: 201407
  5. ROCALTROL [Concomitant]
     Active Substance: CALCITRIOL
     Dosage: UNK
  6. DELTACORTENE [Suspect]
     Active Substance: PREDNISONE
     Indication: SYSTEMIC LUPUS ERYTHEMATOSUS
     Dosage: 5 MILLIGRAM (10CPR)
     Route: 065
  7. SINTROM [Concomitant]
     Active Substance: ACENOCOUMAROL
     Dosage: UNK
  8. SERETIDE [Concomitant]
     Active Substance: FLUTICASONE PROPIONATE\SALMETEROL XINAFOATE
     Dosage: 50 + 500MCG 60D
  9. OROTRE [Concomitant]
     Dosage: UNK
  10. SYALOX [Concomitant]
     Dosage: UNK
  11. RIOPAN [PIROXICAM] [Concomitant]
     Active Substance: PIROXICAM
     Dosage: UNK
  12. AZATHIOPRINE. [Concomitant]
     Active Substance: AZATHIOPRINE
     Indication: SYSTEMIC LUPUS ERYTHEMATOSUS
     Dosage: UNK
  13. LIMPIDEX [Concomitant]
     Active Substance: LANSOPRAZOLE
     Indication: GASTRITIS
     Dosage: UNK
  14. KESTINE [Concomitant]
     Active Substance: EBASTINE
     Dosage: 10 MILLIGRAM, 10CPR RIV 10MG

REACTIONS (4)
  - Drug specific antibody [Recovered/Resolved]
  - Ill-defined disorder [Unknown]
  - Spinal compression fracture [Recovered/Resolved]
  - Rebound effect [Unknown]

NARRATIVE: CASE EVENT DATE: 2018
